FAERS Safety Report 5684450-1 (Version None)
Quarter: 2008Q1

REPORT INFORMATION
  Report Type: 
  Country: None (occurrence: None)
  Receive Date: 20080327
  Receipt Date: 20080327
  Transmission Date: 20080703
  Serious: No
  Sender: FDA-Public Use
  Company Number: None

PATIENT
  Sex: Female

DRUGS (1)
  1. ALENDRONATE SODIUM [Suspect]
     Indication: OSTEOPOROSIS
     Dosage: 70 MG   1 EVERY WEEK  PO
     Route: 048
     Dates: start: 20080306, end: 20080323

REACTIONS (1)
  - PHARMACEUTICAL PRODUCT COMPLAINT [None]
